FAERS Safety Report 6230651-3 (Version None)
Quarter: 2009Q2

REPORT INFORMATION
  Report Type: 
  Country: None (occurrence: None)
  Receive Date: 20090616
  Receipt Date: 20090421
  Transmission Date: 20091009
  Serious: Yes (Other)
  Sender: FDA-Public Use
  Company Number: US-CELGENEUS-163-21880-09042138

PATIENT

DRUGS (4)
  1. REVLIMID [Suspect]
     Route: 048
  2. REVLIMID [Suspect]
     Route: 048
  3. AZACITIDINE INJECTABLE [Suspect]
     Route: 058
  4. AZACITIDINE INJECTABLE [Suspect]
     Route: 058

REACTIONS (3)
  - ATRIAL FIBRILLATION [None]
  - BASAL CELL CARCINOMA [None]
  - CEREBRAL HAEMORRHAGE [None]
